FAERS Safety Report 10530662 (Version 1)
Quarter: 2014Q4

REPORT INFORMATION
  Report Type: Spontaneous
  Country: FR (occurrence: FR)
  Receive Date: 20141021
  Receipt Date: 20141021
  Transmission Date: 20150528
  Serious: Yes (Hospitalization)
  Sender: FDA-Public Use
  Company Number: FR-SA-2014SA140762

PATIENT
  Age: 70 Year
  Sex: Female

DRUGS (8)
  1. TAHOR [Concomitant]
     Active Substance: ATORVASTATIN CALCIUM
  2. CORDARONE [Concomitant]
     Active Substance: AMIODARONE HYDROCHLORIDE
     Route: 048
     Dates: start: 201308
  3. DIGOXIN ^NATIVELLE^ [Concomitant]
     Active Substance: DIGOXIN
     Route: 048
     Dates: start: 201308, end: 20131017
  4. ALDACTONE [Suspect]
     Active Substance: SPIRONOLACTONE
     Dosage: STRENGTH:25 MG,DIVISIBLE FILM COATED TABLET
     Route: 048
     Dates: start: 201308, end: 20131017
  5. LASILIX [Suspect]
     Active Substance: FUROSEMIDE
     Route: 048
     Dates: start: 201308, end: 20131017
  6. PREVISCAN [Concomitant]
     Active Substance: FLUINDIONE
     Route: 048
     Dates: start: 201308
  7. ISOPTIN [Concomitant]
     Active Substance: VERAPAMIL HYDROCHLORIDE
     Route: 048
     Dates: start: 201308
  8. METFORMIN [Concomitant]
     Active Substance: METFORMIN HYDROCHLORIDE

REACTIONS (2)
  - Drug level increased [Recovered/Resolved]
  - Acute kidney injury [Recovered/Resolved]

NARRATIVE: CASE EVENT DATE: 20131016
